FAERS Safety Report 8921425 (Version 4)
Quarter: 2013Q1

REPORT INFORMATION
  Report Type: Report from Study
  Country: US (occurrence: US)
  Receive Date: 20121121
  Receipt Date: 20130111
  Transmission Date: 20140127
  Serious: Yes (Other)
  Sender: FDA-Public Use
  Company Number: US-JNJFOC-20121106561

PATIENT
  Age: 65 Year
  Sex: Male
  Weight: 125.65 kg

DRUGS (7)
  1. STELARA [Suspect]
     Indication: PSORIASIS
     Route: 058
     Dates: start: 20121028
  2. FUROSEMIDE [Concomitant]
     Route: 048
  3. LITHIUM [Concomitant]
     Route: 048
  4. DOXAZOSIN [Concomitant]
  5. GABAPENTIN [Concomitant]
     Route: 048
  6. SYMBICORT [Concomitant]
     Route: 055
  7. ALBUTEROL [Concomitant]
     Route: 055

REACTIONS (2)
  - Chronic obstructive pulmonary disease [Recovered/Resolved]
  - Bronchitis [Recovered/Resolved]
